FAERS Safety Report 18067339 (Version 1)
Quarter: 2020Q3

REPORT INFORMATION
  Report Type: Spontaneous
  Country: US (occurrence: US)
  Receive Date: 20200724
  Receipt Date: 20200724
  Transmission Date: 20201103
  Serious: No
  Sender: FDA-Public Use
  Company Number: US-IPSEN BIOPHARMACEUTICALS, INC.-2020-12452

PATIENT
  Sex: Female

DRUGS (4)
  1. DYSPORT [Suspect]
     Active Substance: ABOBOTULINUMTOXINA
     Indication: SKIN WRINKLING
  2. DYSPORT [Suspect]
     Active Substance: ABOBOTULINUMTOXINA
     Indication: SKIN WRINKLING
     Dosage: TOTAL?124 IU (GLABELLA?54U, FOREHEAD?25U, CROWS?45U)
     Route: 065
     Dates: start: 20200623, end: 20200623
  3. DYSPORT [Suspect]
     Active Substance: ABOBOTULINUMTOXINA
     Indication: SKIN WRINKLING
  4. DYSPORT [Suspect]
     Active Substance: ABOBOTULINUMTOXINA
     Indication: OFF LABEL USE

REACTIONS (11)
  - Tremor [Unknown]
  - Periorbital swelling [Unknown]
  - Dyspnoea [Unknown]
  - Eyelid ptosis [Unknown]
  - Influenza like illness [Unknown]
  - Vomiting [Unknown]
  - Off label use [Unknown]
  - Anxiety [Unknown]
  - Off label use [Unknown]
  - Prescribed overdose [Unknown]
  - Nausea [Unknown]

NARRATIVE: CASE EVENT DATE: 20200623
